FAERS Safety Report 10371332 (Version 1)
Quarter: 2014Q3

REPORT INFORMATION
  Report Type: Spontaneous
  Country: US (occurrence: None)
  Receive Date: 20140807
  Receipt Date: 20140807
  Transmission Date: 20150326
  Serious: Yes (Disabling, Other)
  Sender: FDA-Public Use
  Company Number: None

PATIENT
  Age: 16 Year
  Sex: Male
  Weight: 74.84 kg

DRUGS (1)
  1. SEROQUEL [Suspect]
     Active Substance: QUETIAPINE FUMARATE
     Indication: BIPOLAR DISORDER

REACTIONS (14)
  - Joint dislocation [None]
  - Spondylolysis [None]
  - Tardive dyskinesia [None]
  - Arthralgia [None]
  - Joint range of motion decreased [None]
  - Myoclonus [None]
  - Pain [None]
  - Fibromyalgia [None]
  - Fatigue [None]
  - Dyskinesia [None]
  - Gait disturbance [None]
  - Muscle spasms [None]
  - Educational problem [None]
  - Withdrawal syndrome [None]

NARRATIVE: CASE EVENT DATE: 20111104
